FAERS Safety Report 7440111-X (Version None)
Quarter: 2011Q2

REPORT INFORMATION
  Report Type: 
  Country: None (occurrence: None)
  Receive Date: 20110427
  Receipt Date: 20110419
  Transmission Date: 20111010
  Serious: Yes (Other)
  Sender: FDA-Public Use
  Company Number: CA-ROCHE-767362

PATIENT
  Sex: Female

DRUGS (8)
  1. HYDROCHLOROTHIAZIDE [Concomitant]
  2. METFORMIN [Concomitant]
  3. TOCILIZUMAB [Suspect]
     Dosage: FORM: INFUSION. DOSE: 8MG/KG
     Route: 042
     Dates: start: 20110322, end: 20110322
  4. LORAZEPAM [Concomitant]
  5. PLAQUENIL [Concomitant]
  6. ENBREL [Concomitant]
  7. CYCLOSPORINE [Concomitant]
  8. DIOVAN [Concomitant]

REACTIONS (2)
  - ANAPHYLACTIC REACTION [None]
  - ANGINA PECTORIS [None]
